FAERS Safety Report 25225433 (Version 1)
Quarter: 2025Q2

REPORT INFORMATION
  Report Type: Other
  Country: GB (occurrence: GB)
  Receive Date: 20250422
  Receipt Date: 20250422
  Transmission Date: 20250717
  Serious: Yes (Hospitalization, Other)
  Sender: B BRAUN
  Company Number: GB-B.Braun Medical Inc.-2175368

PATIENT
  Age: 82 Year
  Sex: Male

DRUGS (4)
  1. CEFUROXIME [Suspect]
     Active Substance: CEFUROXIME
  2. DEXAMETHASONE [Concomitant]
     Active Substance: DEXAMETHASONE
  3. METHYLPREDNISOLONE [Concomitant]
     Active Substance: METHYLPREDNISOLONE
  4. DORZOLAMIDE [Concomitant]
     Active Substance: DORZOLAMIDE

REACTIONS (2)
  - Maculopathy [Recovered/Resolved]
  - Off label use [Unknown]
